FAERS Safety Report 6146688-9 (Version None)
Quarter: 2009Q2

REPORT INFORMATION
  Report Type: 
  Country: None (occurrence: None)
  Receive Date: 20090403
  Receipt Date: 20090403
  Transmission Date: 20091009
  Serious: Yes (Hospitalization)
  Sender: FDA-Public Use
  Company Number: None

PATIENT
  Age: 81 Year
  Sex: Male

DRUGS (1)
  1. ATENOLOL [Suspect]
     Indication: ATRIAL FIBRILLATION
     Dosage: 12.5 MG EVERY DAY PO
     Route: 048
     Dates: start: 20010322, end: 20090327

REACTIONS (2)
  - BRADYCARDIA [None]
  - SYNCOPE [None]
